FAERS Safety Report 12423063 (Version 1)
Quarter: 2016Q2

REPORT INFORMATION
  Report Type: Spontaneous
  Country: US (occurrence: None)
  Receive Date: 20160531
  Receipt Date: 20160531
  Transmission Date: 20160815
  Serious: Yes (Other)
  Sender: FDA-Public Use
  Company Number: None

PATIENT
  Age: 61 Year
  Weight: 92.99 kg

DRUGS (14)
  1. ASA [Concomitant]
     Active Substance: ASPIRIN
  2. EGRIFTA [Suspect]
     Active Substance: TESAMORELIN
     Indication: LIPODYSTROPHY ACQUIRED
     Route: 058
  3. ZETIA [Concomitant]
     Active Substance: EZETIMIBE
  4. AZELASTINE [Concomitant]
     Active Substance: AZELASTINE
  5. TOPROL XL [Concomitant]
     Active Substance: METOPROLOL SUCCINATE
  6. NASALIDE [Concomitant]
     Active Substance: FLUNISOLIDE
  7. CRESTOR [Concomitant]
     Active Substance: ROSUVASTATIN CALCIUM
  8. HCTZ [Concomitant]
     Active Substance: HYDROCHLOROTHIAZIDE
  9. BENADRYL [Concomitant]
     Active Substance: DIPHENHYDRAMINE HYDROCHLORIDE
  10. MEALTONIN [Concomitant]
  11. ENAALAPRIL [Concomitant]
  12. OMEGA THREE [Concomitant]
  13. EGRIFTA [Suspect]
     Active Substance: TESAMORELIN
     Indication: HIV INFECTION
     Route: 058
  14. LEXAPRO [Concomitant]
     Active Substance: ESCITALOPRAM OXALATE

REACTIONS (3)
  - Adenomatous polyposis coli [None]
  - Large intestine polyp [None]
  - Condition aggravated [None]

NARRATIVE: CASE EVENT DATE: 20160517
